FAERS Safety Report 24602336 (Version 1)
Quarter: 2024Q4

REPORT INFORMATION
  Report Type: Spontaneous
  Country: JP (occurrence: JP)
  Receive Date: 20241111
  Receipt Date: 20241111
  Transmission Date: 20250115
  Serious: Yes (Hospitalization, Other)
  Sender: Haleon PLC
  Company Number: JP-HALEON-2207109

PATIENT
  Age: 6 Decade
  Sex: Male

DRUGS (1)
  1. ALLI [Suspect]
     Active Substance: ORLISTAT
     Indication: Fat tissue decreased
     Dosage: 90 CAPSULES, DURATION OF USE: ABOUT 6 MONTHS. TOOK 1 CAPSULE WHEN EATING A FATTY MEAL.
     Route: 048

REACTIONS (3)
  - Acute myocardial infarction [Recovering/Resolving]
  - Product use issue [Unknown]
  - Thrombosis [Recovered/Resolved]
